FAERS Safety Report 8428292-2 (Version None)
Quarter: 2012Q2

REPORT INFORMATION
  Report Type: 
  Country: None (occurrence: None)
  Receive Date: 20120611
  Receipt Date: 20120605
  Transmission Date: 20120825
  Serious: Yes (Hospitalization, Other)
  Sender: FDA-Public Use
  Company Number: US-MERCK-1201USA02560

PATIENT
  Age: 65 Year
  Sex: Female
  Weight: 85 kg

DRUGS (1)
  1. FOSAMAX [Suspect]
     Indication: OSTEOPOROSIS
     Route: 048
     Dates: start: 20040101, end: 20090101

REACTIONS (16)
  - FEMUR FRACTURE [None]
  - UTERINE DISORDER [None]
  - GAIT DISTURBANCE [None]
  - FALL [None]
  - OSTEOARTHRITIS [None]
  - DYSLIPIDAEMIA [None]
  - HELICOBACTER INFECTION [None]
  - ARTHRITIS [None]
  - OSTEOPENIA [None]
  - MUSCULOSKELETAL CHEST PAIN [None]
  - SYNCOPE [None]
  - GALLBLADDER DISORDER [None]
  - VENOUS INSUFFICIENCY [None]
  - TONSILLAR DISORDER [None]
  - ANGIOPATHY [None]
  - HYPERTENSION [None]
